FAERS Safety Report 6147672-1 (Version None)
Quarter: 2009Q2

REPORT INFORMATION
  Report Type: 
  Country: None (occurrence: None)
  Receive Date: 20090408
  Receipt Date: 20090331
  Transmission Date: 20091009
  Serious: Yes (Hospitalization)
  Sender: FDA-Public Use
  Company Number: PHHY2009ES12612

PATIENT
  Age: 40 Year
  Sex: Male

DRUGS (2)
  1. MYCOPHENOLIC ACID [Suspect]
     Indication: PEMPHIGUS
     Dosage: UNK
     Dates: start: 20060801
  2. IMMUNE GLOBULIN (HUMAN) [Concomitant]
     Route: 042

REACTIONS (6)
  - BLISTER [None]
  - DISEASE PROGRESSION [None]
  - ECZEMA HERPETICUM [None]
  - EYE PAIN [None]
  - PEMPHIGUS [None]
  - SKIN EROSION [None]
